FAERS Safety Report 10177939 (Version 1)
Quarter: 2014Q2

REPORT INFORMATION
  Report Type: Report from Study
  Country: US (occurrence: US)
  Receive Date: 20140516
  Receipt Date: 20140516
  Transmission Date: 20141212
  Serious: Yes (Other)
  Sender: FDA-Public Use
  Company Number: PHEH2014US009643

PATIENT
  Sex: Male

DRUGS (6)
  1. TOBI PODHALER [Suspect]
     Indication: CYSTIC FIBROSIS
     Dosage: 112 MG, BID
     Route: 055
  2. TOBI PODHALER [Suspect]
     Indication: LUNG DISORDER
  3. TOBI PODHALER [Suspect]
     Indication: PSEUDOMONAS INFECTION
  4. TOBI [Suspect]
     Indication: CYSTIC FIBROSIS
     Dosage: UNK MG/ML, BID (300MG/5ML)
     Route: 055
  5. TOBI [Suspect]
     Indication: LUNG DISORDER
  6. TOBI [Suspect]
     Indication: PSEUDOMONAS INFECTION

REACTIONS (3)
  - Laryngitis [Unknown]
  - Aphonia [Unknown]
  - Dysphonia [Unknown]
